FAERS Safety Report 25234644 (Version 3)
Quarter: 2025Q3

REPORT INFORMATION
  Report Type: Spontaneous
  Country: AR (occurrence: AR)
  Receive Date: 20250424
  Receipt Date: 20250728
  Transmission Date: 20251021
  Serious: Yes (Other)
  Sender: MYLAN
  Company Number: AR-MYLANLABS-2025M1034832

PATIENT
  Age: 29 Year
  Sex: Male

DRUGS (20)
  1. CLOZAPINE [Suspect]
     Active Substance: CLOZAPINE
     Indication: Product used for unknown indication
     Dosage: 600 MILLIGRAM, QD (PER DAY; APPROXIMATE START DATE REPORTED AS 01-JAN-2021)
     Dates: start: 202101
  2. CLOZAPINE [Suspect]
     Active Substance: CLOZAPINE
     Dosage: 600 MILLIGRAM, QD (PER DAY; APPROXIMATE START DATE REPORTED AS 01-JAN-2021)
     Route: 065
     Dates: start: 202101
  3. CLOZAPINE [Suspect]
     Active Substance: CLOZAPINE
     Dosage: 600 MILLIGRAM, QD (PER DAY; APPROXIMATE START DATE REPORTED AS 01-JAN-2021)
     Route: 065
     Dates: start: 202101
  4. CLOZAPINE [Suspect]
     Active Substance: CLOZAPINE
     Dosage: 600 MILLIGRAM, QD (PER DAY; APPROXIMATE START DATE REPORTED AS 01-JAN-2021)
     Dates: start: 202101
  5. RISPERIDONE [Concomitant]
     Active Substance: RISPERIDONE
     Dosage: UNK, BID (1 MG IN THE MORNING AND 2 MG IN THE EVENING)
  6. RISPERIDONE [Concomitant]
     Active Substance: RISPERIDONE
     Dosage: UNK, BID (1 MG IN THE MORNING AND 2 MG IN THE EVENING)
     Route: 065
  7. RISPERIDONE [Concomitant]
     Active Substance: RISPERIDONE
     Dosage: UNK, BID (1 MG IN THE MORNING AND 2 MG IN THE EVENING)
     Route: 065
  8. RISPERIDONE [Concomitant]
     Active Substance: RISPERIDONE
     Dosage: UNK, BID (1 MG IN THE MORNING AND 2 MG IN THE EVENING)
  9. LORAZEPAM [Concomitant]
     Active Substance: LORAZEPAM
     Dosage: 2.5 MILLIGRAM, QID (IN THE MORNING, NOON, AFTERNOON, AND EVENING)
  10. LORAZEPAM [Concomitant]
     Active Substance: LORAZEPAM
     Dosage: 2.5 MILLIGRAM, QID (IN THE MORNING, NOON, AFTERNOON, AND EVENING)
     Route: 065
  11. LORAZEPAM [Concomitant]
     Active Substance: LORAZEPAM
     Dosage: 2.5 MILLIGRAM, QID (IN THE MORNING, NOON, AFTERNOON, AND EVENING)
     Route: 065
  12. LORAZEPAM [Concomitant]
     Active Substance: LORAZEPAM
     Dosage: 2.5 MILLIGRAM, QID (IN THE MORNING, NOON, AFTERNOON, AND EVENING)
  13. CARBAMAZEPINE [Concomitant]
     Active Substance: CARBAMAZEPINE
     Dosage: 200 MILLIGRAM, QID (IN THE MORNING, NOON, AFTERNOON, AND EVENING)
  14. CARBAMAZEPINE [Concomitant]
     Active Substance: CARBAMAZEPINE
     Dosage: 200 MILLIGRAM, QID (IN THE MORNING, NOON, AFTERNOON, AND EVENING)
     Route: 065
  15. CARBAMAZEPINE [Concomitant]
     Active Substance: CARBAMAZEPINE
     Dosage: 200 MILLIGRAM, QID (IN THE MORNING, NOON, AFTERNOON, AND EVENING)
     Route: 065
  16. CARBAMAZEPINE [Concomitant]
     Active Substance: CARBAMAZEPINE
     Dosage: 200 MILLIGRAM, QID (IN THE MORNING, NOON, AFTERNOON, AND EVENING)
  17. PROMETHAZINE [Concomitant]
     Active Substance: PROMETHAZINE HYDROCHLORIDE
  18. PROMETHAZINE [Concomitant]
     Active Substance: PROMETHAZINE HYDROCHLORIDE
     Route: 065
  19. PROMETHAZINE [Concomitant]
     Active Substance: PROMETHAZINE HYDROCHLORIDE
     Route: 065
  20. PROMETHAZINE [Concomitant]
     Active Substance: PROMETHAZINE HYDROCHLORIDE

REACTIONS (3)
  - Neutropenia [Recovered/Resolved]
  - Lymphocyte count increased [Recovered/Resolved]
  - Monocyte count increased [Recovered/Resolved]

NARRATIVE: CASE EVENT DATE: 20250419
